FAERS Safety Report 22205205 (Version 1)
Quarter: 2023Q2

REPORT INFORMATION
  Report Type: Spontaneous
  Country: US (occurrence: US)
  Receive Date: 20230413
  Receipt Date: 20230413
  Transmission Date: 20230721
  Serious: No
  Sender: FDA-Public Use
  Company Number: US-LUPIN PHARMACEUTICALS INC.-2023-02754

PATIENT

DRUGS (1)
  1. BUDESONIDE [Suspect]
     Active Substance: BUDESONIDE
     Indication: Product used for unknown indication
     Dosage: UNK (DIFFERENT NUMBERS ON THE BOTTLE WHICH WERE LBLO30700 AND 22T66)
     Route: 065

REACTIONS (5)
  - Product prescribing issue [Unknown]
  - Liquid product physical issue [Unknown]
  - Device deposit issue [Unknown]
  - Wrong technique in product usage process [Unknown]
  - No adverse event [Unknown]
